FAERS Safety Report 6663397-8 (Version None)
Quarter: 2010Q2

REPORT INFORMATION
  Report Type: 
  Country: None (occurrence: None)
  Receive Date: 20100401
  Receipt Date: 20100324
  Transmission Date: 20101027
  Serious: Yes (Other)
  Sender: FDA-Public Use
  Company Number: JP-PFIZER INC-2010038728

PATIENT
  Sex: Female

DRUGS (3)
  1. ZITHROMAC [Suspect]
     Indication: PERIODONTAL DISEASE
     Dosage: UNK
     Route: 048
     Dates: start: 20090501, end: 20090101
  2. ZITHROMAC [Suspect]
     Indication: PERIODONTITIS
  3. ZITHROMAC [Suspect]
     Indication: STOMATITIS

REACTIONS (4)
  - DISTURBANCE IN ATTENTION [None]
  - HEADACHE [None]
  - HYPERSENSITIVITY [None]
  - VISUAL ACUITY REDUCED [None]
